FAERS Safety Report 16004948 (Version 2)
Quarter: 2020Q2

REPORT INFORMATION
  Report Type: Spontaneous
  Country: US (occurrence: US)
  Receive Date: 20190226
  Receipt Date: 20200409
  Transmission Date: 20200713
  Serious: Yes (Other)
  Sender: FDA-Public Use
  Company Number: PHEH2019US008387

PATIENT
  Age: 52 Year
  Sex: Male

DRUGS (1)
  1. TASIGNA [Suspect]
     Active Substance: NILOTINIB
     Indication: CHRONIC MYELOID LEUKAEMIA
     Dosage: 150 MG, BID
     Route: 048
     Dates: start: 201306, end: 201502

REACTIONS (5)
  - Angina pectoris [Unknown]
  - Myocardial infarction [Unknown]
  - Injury [Unknown]
  - Cardiac murmur [Unknown]
  - Rash [Unknown]

NARRATIVE: CASE EVENT DATE: 201502
